FAERS Safety Report 25278604 (Version 1)
Quarter: 2025Q2

REPORT INFORMATION
  Report Type: Spontaneous
  Country: EU (occurrence: EU)
  Receive Date: 20250507
  Receipt Date: 20250507
  Transmission Date: 20250717
  Serious: Yes (Other)
  Sender: SEPTODONT
  Company Number: None

PATIENT

DRUGS (1)
  1. ARTICAINE HYDROCHLORIDE\EPINEPHRINE BITARTRATE [Suspect]
     Active Substance: ARTICAINE HYDROCHLORIDE\EPINEPHRINE BITARTRATE
     Indication: Dental local anaesthesia
     Route: 004

REACTIONS (4)
  - Nerve injury [Not Recovered/Not Resolved]
  - Swelling face [Unknown]
  - Pain [Unknown]
  - Lip disorder [Recovered/Resolved]

NARRATIVE: CASE EVENT DATE: 20250428
